FAERS Safety Report 15624937 (Version 3)
Quarter: 2019Q1

REPORT INFORMATION
  Report Type: Spontaneous
  Country: US (occurrence: US)
  Receive Date: 20181116
  Receipt Date: 20190130
  Transmission Date: 20190417
  Serious: Yes (Other)
  Sender: FDA-Public Use
  Company Number: PHHY2018US155063

PATIENT
  Sex: Female

DRUGS (3)
  1. SYSTANE ULTRA [Suspect]
     Active Substance: POLYETHYLENE GLYCOL 400\PROPYLENE GLYCOL
     Indication: PRODUCT USED FOR UNKNOWN INDICATION
     Route: 047
     Dates: start: 20181109, end: 20181109
  2. SYSTANE GELDROPS [Suspect]
     Active Substance: POLYETHYLENE GLYCOL 400\PROPYLENE GLYCOL
     Indication: PRODUCT USED FOR UNKNOWN INDICATION
     Dosage: UNK
     Route: 047
     Dates: start: 20181109, end: 20181109
  3. SYSTANE GELDROPS [Suspect]
     Active Substance: POLYETHYLENE GLYCOL 400\PROPYLENE GLYCOL
     Dosage: UNK
     Route: 047
     Dates: start: 20181109, end: 20181109

REACTIONS (6)
  - Eye swelling [Recovered/Resolved]
  - Hypersensitivity [Recovered/Resolved]
  - Nasal congestion [Recovered/Resolved]
  - Product quality issue [Unknown]
  - Ocular hyperaemia [Recovered/Resolved]
  - Swelling face [Recovered/Resolved]

NARRATIVE: CASE EVENT DATE: 20181109
